FAERS Safety Report 24202632 (Version 3)
Quarter: 2025Q3

REPORT INFORMATION
  Report Type: Report from Study
  Country: CA (occurrence: CA)
  Receive Date: 20240813
  Receipt Date: 20250701
  Transmission Date: 20251021
  Serious: Yes (Other)
  Sender: Alvotech
  Company Number: CA-JAMP PHARMA CORPORATION-2023-JAM-CA-02029

PATIENT
  Age: 71 Year
  Sex: Female

DRUGS (3)
  1. SIMLANDI [Suspect]
     Active Substance: ADALIMUMAB-RYVK
     Indication: Rheumatoid arthritis
     Route: 058
     Dates: start: 20230501, end: 20250407
  2. SIMLANDI [Suspect]
     Active Substance: ADALIMUMAB-RYVK
     Indication: Rheumatoid arthritis
     Route: 065
  3. SIMLANDI [Suspect]
     Active Substance: ADALIMUMAB-RYVK
     Indication: Rheumatoid arthritis
     Route: 065
     Dates: start: 20231009, end: 20231009

REACTIONS (5)
  - Systemic lupus erythematosus [Not Recovered/Not Resolved]
  - Gastrointestinal infection [Not Recovered/Not Resolved]
  - Malaise [Unknown]
  - Inappropriate schedule of product administration [Unknown]
  - Product dispensing issue [Unknown]
